FAERS Safety Report 8136886-7 (Version None)
Quarter: 2012Q1

REPORT INFORMATION
  Report Type: 
  Country: None (occurrence: None)
  Receive Date: 20120214
  Receipt Date: 20120210
  Transmission Date: 20120608
  Serious: Yes (Life-Threatening, Hospitalization)
  Sender: FDA-Public Use
  Company Number: IT-ASTRAZENECA-2012SE09138

PATIENT
  Sex: Female

DRUGS (1)
  1. SEROQUEL XR [Suspect]
     Dosage: 50 TABLETS OF 400 MG
     Route: 048

REACTIONS (4)
  - OVERDOSE [None]
  - TACHYCARDIA [None]
  - STUPOR [None]
  - SUICIDE ATTEMPT [None]
